FAERS Safety Report 9574968 (Version 1)
Quarter: 2013Q4

REPORT INFORMATION
  Report Type: Spontaneous
  Country: FR (occurrence: FR)
  Receive Date: 20131001
  Receipt Date: 20131001
  Transmission Date: 20140711
  Serious: Yes (Other)
  Sender: FDA-Public Use
  Company Number: FR-MYLANLABS-2013S1021181

PATIENT
  Age: 49 Year
  Sex: Male

DRUGS (11)
  1. AZATHIOPRINE [Suspect]
     Indication: COLITIS ULCERATIVE
     Dosage: 2 MG/KG/DAY
     Route: 065
     Dates: start: 200801
  2. AZATHIOPRINE [Suspect]
     Indication: COLITIS ULCERATIVE
     Dosage: 2.5 MG/KG/DAY
     Route: 065
     Dates: start: 200801
  3. CICLOSPORIN [Suspect]
     Indication: COLITIS ULCERATIVE
     Dosage: 2 MG/KG/DAY
     Route: 042
  4. CICLOSPORIN [Suspect]
     Indication: COLITIS ULCERATIVE
     Dosage: 2 MG/KG/DAY
     Route: 048
  5. INFLIXIMAB [Suspect]
     Indication: COLITIS ULCERATIVE
     Dosage: 5 MG/KG INFUSIONS AT WEEKS 0 AND 2
  6. INFLIXIMAB [Suspect]
     Indication: COLITIS ULCERATIVE
     Dosage: 10 MG/KG INFUSION AT WEEK 6
  7. PREDNISOLONE [Concomitant]
     Route: 048
     Dates: start: 200709
  8. PREDNISONE [Concomitant]
     Dosage: 1 MG/KG/DAY
     Route: 042
     Dates: start: 200709
  9. CIPROFLOXACIN [Concomitant]
     Route: 065
  10. GANCICLOVIR [Concomitant]
     Route: 042
  11. METRONIDAZOLE [Concomitant]
     Route: 048

REACTIONS (2)
  - Kaposi^s sarcoma [Unknown]
  - Human herpesvirus 8 infection [Unknown]
